FAERS Safety Report 6190208-X (Version None)
Quarter: 2009Q2

REPORT INFORMATION
  Report Type: 
  Country: None (occurrence: None)
  Receive Date: 20090427
  Receipt Date: 20081231
  Transmission Date: 20091009
  Serious: Yes (Other)
  Sender: FDA-Public Use
  Company Number: WAES 0812USA05354

PATIENT
  Age: 45 Month
  Sex: Female
  Weight: 21.3191 kg

DRUGS (2)
  1. SINGULAIR [Suspect]
     Dosage: 4 MG/DAILY/PO
     Route: 048
     Dates: start: 20081023, end: 20081108
  2. ZITHROMAX [Concomitant]

REACTIONS (1)
  - URTICARIA [None]
